FAERS Safety Report 6161469-8 (Version None)
Quarter: 2009Q2

REPORT INFORMATION
  Report Type: 
  Country: None (occurrence: None)
  Receive Date: 20090417
  Receipt Date: 20090410
  Transmission Date: 20091009
  Serious: Yes (Hospitalization)
  Sender: FDA-Public Use
  Company Number: 2009SP007782

PATIENT
  Age: 60 Year
  Sex: Female

DRUGS (4)
  1. RIBAVIRIN [Suspect]
     Indication: HEPATITIS C
     Dosage: PO; PO
     Route: 048
     Dates: start: 20050101
  2. RIBAVIRIN [Suspect]
     Indication: HEPATITIS C
     Dosage: PO; PO
     Route: 048
     Dates: start: 20090410
  3. PEGASYS [Suspect]
     Indication: HEPATITIS C
     Dates: start: 20050101
  4. PEGASYS [Suspect]
     Indication: HEPATITIS C
     Dates: start: 20090410

REACTIONS (8)
  - BLOOD SODIUM DECREASED [None]
  - CARDIAC DISORDER [None]
  - DYSPNOEA [None]
  - FATIGUE [None]
  - HYPOTENSION [None]
  - PLATELET COUNT DECREASED [None]
  - PRESYNCOPE [None]
  - STAPHYLOCOCCAL INFECTION [None]
